FAERS Safety Report 19429837 (Version 1)
Quarter: 2021Q2

REPORT INFORMATION
  Report Type: Spontaneous
  Country: GB (occurrence: GB)
  Receive Date: 20210617
  Receipt Date: 20210617
  Transmission Date: 20210717
  Serious: Yes (Life-Threatening, Hospitalization, Other)
  Sender: FDA-Public Use
  Company Number: GB-GLAXOSMITHKLINE-GBCH2021038399

PATIENT
  Age: 73 Year
  Sex: Male
  Weight: 73 kg

DRUGS (2)
  1. CANNABIS [Concomitant]
     Active Substance: CANNABIS SATIVA SUBSP. INDICA TOP
     Indication: PRODUCT USED FOR UNKNOWN INDICATION
     Dosage: UNK
     Route: 065
  2. ANADIN EXTRA [Suspect]
     Active Substance: ACETAMINOPHEN\ASPIRIN\CAFFEINE
     Indication: RENAL PAIN
     Dosage: 2 DF, (EVERY 3?4 DAYS)
     Route: 048

REACTIONS (15)
  - Melaena [Unknown]
  - Abdominal pain [Recovered/Resolved]
  - Palpitations [Unknown]
  - Gastritis [Unknown]
  - Loss of consciousness [Unknown]
  - Anaemia [Unknown]
  - Dizziness exertional [Unknown]
  - Gastrointestinal haemorrhage [Recovering/Resolving]
  - Asthenia [Unknown]
  - Faeces discoloured [Unknown]
  - Dyspnoea [Unknown]
  - Fatigue [Unknown]
  - Somnolence [Unknown]
  - Duodenitis [Unknown]
  - Ulcer [Unknown]

NARRATIVE: CASE EVENT DATE: 20210609
